FAERS Safety Report 7934029-3 (Version None)
Quarter: 2011Q4

REPORT INFORMATION
  Report Type: 
  Country: None (occurrence: None)
  Receive Date: 20111122
  Receipt Date: 20111114
  Transmission Date: 20120403
  Serious: Yes (Other)
  Sender: FDA-Public Use
  Company Number: DE-ROCHE-739640

PATIENT
  Sex: Female
  Weight: 56 kg

DRUGS (1)
  1. TAMIFLU [Suspect]
     Indication: H1N1 INFLUENZA
     Dosage: RECEIVED TAMIFLU FOR TWO WEEKS.
     Route: 065
     Dates: start: 20091103, end: 20091113

REACTIONS (4)
  - SJOGREN'S SYNDROME [None]
  - VISUAL IMPAIRMENT [None]
  - MUCOSAL DRYNESS [None]
  - NAUSEA [None]
